FAERS Safety Report 9651498 (Version 1)
Quarter: 2013Q4

REPORT INFORMATION
  Report Type: Spontaneous
  Country: US (occurrence: US)
  Receive Date: 20131029
  Receipt Date: 20131029
  Transmission Date: 20140711
  Serious: No
  Sender: FDA-Public Use
  Company Number: US-ENDO PHARMACEUTICALS INC.-ISOS20120013

PATIENT
  Age: 72 Year
  Sex: Male

DRUGS (1)
  1. ISOSORBIDE MONONITRATE ER TABLETS 60MG [Suspect]
     Indication: PRODUCT USED FOR UNKNOWN INDICATION
     Route: 048
     Dates: start: 201108

REACTIONS (2)
  - Medication residue present [Unknown]
  - Chest pain [Unknown]
